FAERS Safety Report 4315959-0 (Version None)
Quarter: 2004Q1

REPORT INFORMATION
  Report Type: 
  Country: None (occurrence: None)
  Receive Date: 20040311
  Receipt Date: 20040311
  Transmission Date: 20041129
  Serious: Yes (Other)
  Sender: FDA-Public Use
  Company Number: None

PATIENT
  Age: 47 Year
  Sex: Male
  Weight: 99.7913 kg

DRUGS (1)
  1. PAXIL CR [Suspect]
     Indication: SOCIAL PHOBIA
     Dosage: DAILY

REACTIONS (3)
  - DIZZINESS [None]
  - HEADACHE [None]
  - SUICIDAL IDEATION [None]
